FAERS Safety Report 25130825 (Version 1)
Quarter: 2025Q1

REPORT INFORMATION
  Report Type: Spontaneous
  Country: US (occurrence: US)
  Receive Date: 20250327
  Receipt Date: 20250327
  Transmission Date: 20250409
  Serious: No
  Sender: BAYER HEALTHCARE PHARMACEUTICALS INC.
  Company Number: US-BAYER-2025A039062

PATIENT
  Age: 36 Year
  Sex: Female

DRUGS (1)
  1. MIRENA [Suspect]
     Active Substance: LEVONORGESTREL
     Dosage: 20?G/DAY
     Route: 015
     Dates: start: 20241115

REACTIONS (13)
  - Fatigue [None]
  - Insomnia [None]
  - Headache [None]
  - Migraine [None]
  - Dizziness [None]
  - Photophobia [None]
  - Vaginal haemorrhage [Not Recovered/Not Resolved]
  - Bone disorder [None]
  - Abdominal pain lower [None]
  - Back pain [Recovered/Resolved]
  - Sleep disorder [None]
  - Asthenia [None]
  - Influenza like illness [None]
